FAERS Safety Report 13557451 (Version 1)
Quarter: 2017Q2

REPORT INFORMATION
  Report Type: Spontaneous
  Country: FR (occurrence: FR)
  Receive Date: 20170518
  Receipt Date: 20170518
  Transmission Date: 20170830
  Serious: Yes (Other)
  Sender: FDA-Public Use
  Company Number: FR-PFIZER INC-2016585780

PATIENT
  Sex: Female
  Weight: 69 kg

DRUGS (5)
  1. DALACINE [Suspect]
     Active Substance: CLINDAMYCIN HYDROCHLORIDE
     Indication: INFECTION
     Dosage: UNK UNK, 3X/DAY
     Route: 048
     Dates: start: 20161215, end: 20161219
  2. HYDROXYTRYPTOPHANE [Suspect]
     Active Substance: OXITRIPTAN
     Indication: STRESS
     Dosage: 50 MG, 1X/DAY
     Dates: start: 20170125
  3. DALACINE [Suspect]
     Active Substance: CLINDAMYCIN HYDROCHLORIDE
     Dosage: 600 MG, 3X/DAY
     Route: 048
     Dates: start: 20170125, end: 20170203
  4. HYDROXYTRYPTOPHANE [Suspect]
     Active Substance: OXITRIPTAN
     Indication: SLEEP DISORDER
  5. SPIRAMYCIN [Suspect]
     Active Substance: SPIRAMYCIN
     Indication: INFECTION
     Dosage: 3 MILLION IU, 3X/DAY
     Route: 048
     Dates: start: 20170110, end: 20170118

REACTIONS (4)
  - Confusional state [None]
  - Maternal exposure during pregnancy [None]
  - Depression [None]
  - Abortion spontaneous [Unknown]
